FAERS Safety Report 4707602-3 (Version None)
Quarter: 2005Q3

REPORT INFORMATION
  Report Type: 
  Country: None (occurrence: None)
  Receive Date: 20050705
  Receipt Date: 20050615
  Transmission Date: 20060218
  Serious: Yes (Hospitalization)
  Sender: FDA-Public Use
  Company Number: B0381157A

PATIENT
  Age: 10 Year
  Sex: Female

DRUGS (1)
  1. ALBENZA (ALBENDAZOLE) TABLET [Suspect]
     Dosage: 2 TABLET/TWICE PER DAY

REACTIONS (8)
  - ABDOMINAL PAIN UPPER [None]
  - BACK DISORDER [None]
  - CRYING [None]
  - DYSTHYMIC DISORDER [None]
  - MUSCLE SPASMS [None]
  - OVERDOSE [None]
  - TENDON DISORDER [None]
  - TREMOR [None]
